FAERS Safety Report 11651006 (Version 1)
Quarter: 2015Q4

REPORT INFORMATION
  Report Type: Spontaneous
  Country: US (occurrence: US)
  Receive Date: 20151021
  Receipt Date: 20151021
  Transmission Date: 20160304
  Serious: No
  Sender: FDA-Public Use
  Company Number: GXBR2015US000440

PATIENT
  Age: 31 Year
  Sex: Female
  Weight: 49.89 kg

DRUGS (1)
  1. METHYLPREDNISOLONE TABLETS USP [Suspect]
     Active Substance: METHYLPREDNISOLONE
     Indication: INFLAMMATION
     Dosage: 4 MG TAPER
     Route: 048
     Dates: start: 20141224, end: 20141229

REACTIONS (2)
  - Dizziness [Not Recovered/Not Resolved]
  - Asthenia [Not Recovered/Not Resolved]

NARRATIVE: CASE EVENT DATE: 20141226
